FAERS Safety Report 24145121 (Version 1)
Quarter: 2024Q3

REPORT INFORMATION
  Report Type: Spontaneous
  Country: US (occurrence: None)
  Receive Date: 20240729
  Receipt Date: 20240729
  Transmission Date: 20241016
  Serious: No
  Sender: ASTRAZENECA
  Company Number: 2024A129094

PATIENT
  Age: 75 Year
  Sex: Male
  Weight: 71 kg

DRUGS (2)
  1. BREZTRI [Suspect]
     Active Substance: BUDESONIDE\FORMOTEROL\GLYCOPYRROLATE
     Indication: Chronic obstructive pulmonary disease
     Route: 055
  2. METOPROLOL TARTRATE [Suspect]
     Active Substance: METOPROLOL TARTRATE
     Indication: Supraventricular tachycardia
     Route: 048

REACTIONS (4)
  - Feeling abnormal [Unknown]
  - Wrong technique in device usage process [Unknown]
  - Intentional product misuse [Unknown]
  - Device malfunction [Unknown]
